FAERS Safety Report 13642309 (Version 2)
Quarter: 2017Q2

REPORT INFORMATION
  Report Type: Report from Study
  Country: ES (occurrence: ES)
  Receive Date: 20170612
  Receipt Date: 20170626
  Transmission Date: 20170830
  Serious: Yes (Life-Threatening, Hospitalization)
  Sender: FDA-Public Use
  Company Number: ES-PFIZER INC-2017252710

PATIENT
  Age: 77 Year
  Sex: Female

DRUGS (2)
  1. PALBOCICLIB [Suspect]
     Active Substance: PALBOCICLIB
     Dosage: 125 MG, CYCLIC (EVERY 21 DAYS)
     Route: 048
  2. FULVESTRANT [Concomitant]
     Active Substance: FULVESTRANT
     Indication: BREAST CANCER
     Dosage: 500 MG, CYCLIC (EVERY 28 DAYS)
     Route: 030

REACTIONS (1)
  - Myocardial infarction [Recovered/Resolved]

NARRATIVE: CASE EVENT DATE: 20170606
